FAERS Safety Report 16952563 (Version 1)
Quarter: 2019Q4

REPORT INFORMATION
  Report Type: Spontaneous
  Country: US (occurrence: US)
  Receive Date: 20190904
  Receipt Date: 20190904
  Transmission Date: 20200122
  Serious: No
  Sender: FDA-Public Use
  Company Number: None

PATIENT
  Age: 66 Year
  Sex: Female
  Weight: 62.6 kg

DRUGS (5)
  1. CALCIUM [Concomitant]
     Active Substance: CALCIUM
  2. VITAMIN B12 [Concomitant]
     Active Substance: CYANOCOBALAMIN
  3. ZOMETA [Suspect]
     Active Substance: ZOLEDRONIC ACID
     Dosage: ?          QUANTITY:4 MG MILLIGRAM(S);OTHER FREQUENCY:2 TIMES/YR;?
  4. ANASTROZOLE. [Concomitant]
     Active Substance: ANASTROZOLE
  5. VITAMIN D [Concomitant]
     Active Substance: VITAMIN D NOS

REACTIONS (8)
  - Influenza like illness [None]
  - Nausea [None]
  - Myalgia [None]
  - Malaise [None]
  - Pyrexia [None]
  - Chills [None]
  - Pain [None]
  - Bone pain [None]

NARRATIVE: CASE EVENT DATE: 20190119
